FAERS Safety Report 6984527 (Version 4)
Quarter: 2020Q3

REPORT INFORMATION
  Report Type: Report from Study
  Country: US (occurrence: US)
  Receive Date: 20090501
  Receipt Date: 20100319
  Transmission Date: 20201105
  Serious: Yes (Hospitalization)
  Sender: FDA-Public Use
  Company Number: US-JNJFOC-20090405094

PATIENT
  Age: 17 Year
  Sex: Male
  Weight: 49 kg

DRUGS (14)
  1. IRON [Concomitant]
     Active Substance: IRON
     Route: 048
  2. INFLIXIMAB [Suspect]
     Active Substance: INFLIXIMAB
     Indication: COLITIS ULCERATIVE
     Route: 042
  3. INFLIXIMAB [Suspect]
     Active Substance: INFLIXIMAB
     Route: 042
  4. INFLIXIMAB [Suspect]
     Active Substance: INFLIXIMAB
     Route: 042
  5. MERCAPTOPURINE. [Concomitant]
     Active Substance: MERCAPTOPURINE
     Indication: COLITIS ULCERATIVE
     Route: 048
  6. INFLIXIMAB [Suspect]
     Active Substance: INFLIXIMAB
     Route: 042
  7. INFLIXIMAB [Suspect]
     Active Substance: INFLIXIMAB
     Route: 042
  8. ASACOL [Concomitant]
     Active Substance: MESALAMINE
     Indication: COLITIS ULCERATIVE
     Route: 048
  9. INFLIXIMAB [Suspect]
     Active Substance: INFLIXIMAB
     Route: 042
  10. PROTONIX [Concomitant]
     Active Substance: PANTOPRAZOLE SODIUM
     Route: 048
  11. INFLIXIMAB [Suspect]
     Active Substance: INFLIXIMAB
     Route: 042
  12. CALCIUM [Concomitant]
     Active Substance: CALCIUM
     Route: 048
  13. INFLIXIMAB [Suspect]
     Active Substance: INFLIXIMAB
     Route: 042
  14. VITAMINS [Concomitant]
     Active Substance: VITAMINS
     Route: 048

REACTIONS (1)
  - Cellulitis [Recovered/Resolved]

NARRATIVE: CASE EVENT DATE: 20090317
